FAERS Safety Report 12736546 (Version 2)
Quarter: 2016Q3

REPORT INFORMATION
  Report Type: Report from Study
  Country: NL (occurrence: NL)
  Receive Date: 20160912
  Receipt Date: 20160920
  Transmission Date: 20161109
  Serious: Yes (Hospitalization)
  Sender: FDA-Public Use
  Company Number: NL-ASTELLAS-2016US035161

PATIENT
  Age: 17 Year
  Sex: Male

DRUGS (3)
  1. TACROLIMUS. [Suspect]
     Active Substance: TACROLIMUS
     Indication: DERMATITIS ATOPIC
     Dosage: 0.03 %, ONCE DAILY
     Route: 061
     Dates: start: 20091001
  2. CUTIVATE [Concomitant]
     Active Substance: FLUTICASONE PROPIONATE
     Indication: DERMATITIS ATOPIC
     Dosage: UNK UNK, AS NEEDED
     Route: 061
     Dates: start: 20140402
  3. NEDELTRAN [Concomitant]
     Indication: DERMATITIS ATOPIC
     Route: 048
     Dates: start: 20141112

REACTIONS (1)
  - Anal abscess [Recovered/Resolved with Sequelae]

NARRATIVE: CASE EVENT DATE: 20151221
